FAERS Safety Report 9212870 (Version 1)
Quarter: 2013Q2

REPORT INFORMATION
  Report Type: Spontaneous
  Country: ZA (occurrence: ZA)
  Receive Date: 20130405
  Receipt Date: 20130405
  Transmission Date: 20140414
  Serious: Yes (Hospitalization, Other)
  Sender: FDA-Public Use
  Company Number: ZA-009507513-1304ZAF000071

PATIENT
  Sex: Male

DRUGS (2)
  1. ESMERON [Suspect]
     Indication: MUSCLE RELAXANT THERAPY
     Dosage: UNK
     Route: 042
  2. SEVOFLURANE [Concomitant]

REACTIONS (3)
  - Mechanical ventilation [Unknown]
  - Neuromuscular block prolonged [Unknown]
  - Drug ineffective [Unknown]
